FAERS Safety Report 4985816-5 (Version None)
Quarter: 2006Q2

REPORT INFORMATION
  Report Type: 
  Country: None (occurrence: None)
  Receive Date: 20060421
  Receipt Date: 20060412
  Transmission Date: 20061013
  Serious: Yes (Hospitalization, Other)
  Sender: FDA-Public Use
  Company Number: 2006044918

PATIENT
  Age: 36 Year
  Sex: Female

DRUGS (1)
  1. DEPO-PROVERA [Suspect]
     Indication: ILL-DEFINED DISORDER
     Dosage: FOURTH INJECTION, INTRAMUSCULAR
     Route: 030
     Dates: start: 20030101, end: 20030101

REACTIONS (7)
  - COUGH [None]
  - DYSPNOEA [None]
  - PHARYNGEAL OEDEMA [None]
  - RASH GENERALISED [None]
  - RASH PRURITIC [None]
  - SNEEZING [None]
  - WHEEZING [None]
